FAERS Safety Report 17375381 (Version 2)
Quarter: 2020Q1

REPORT INFORMATION
  Report Type: Spontaneous
  Country: PL (occurrence: PL)
  Receive Date: 20200206
  Receipt Date: 20200323
  Transmission Date: 20200409
  Serious: Yes (Other)
  Sender: FDA-Public Use
  Company Number: PL-AUROBINDO-AUR-APL-2020-005560

PATIENT
  Age: 80 Year
  Sex: Female

DRUGS (3)
  1. TIAPRIDE [Suspect]
     Active Substance: TIAPRIDE
     Indication: SLEEP DISORDER
     Dosage: 75 MILLIGRAM, ONCE A DAY, 25 MG, TID
     Route: 065
  2. QUETIAPINE. [Suspect]
     Active Substance: QUETIAPINE
     Indication: AGITATION
     Dosage: 25 MILLIGRAM
     Route: 065
  3. QUETIAPINE. [Suspect]
     Active Substance: QUETIAPINE
     Indication: SLEEP DISORDER
     Dosage: 50 MILLIGRAM, ONCE A DAY
     Route: 065

REACTIONS (4)
  - Abdominal pain [Unknown]
  - Dementia [Unknown]
  - Constipation [Unknown]
  - Product use in unapproved indication [Unknown]
